FAERS Safety Report 8064961-4 (Version None)
Quarter: 2012Q1

REPORT INFORMATION
  Report Type: 
  Country: None (occurrence: None)
  Receive Date: 20120124
  Receipt Date: 20120117
  Transmission Date: 20120608
  Serious: No
  Sender: FDA-Public Use
  Company Number: US-BIOGENIDEC-2012BI002055

PATIENT
  Age: 54 Year
  Sex: Female

DRUGS (2)
  1. TYSABRI [Suspect]
     Indication: MULTIPLE SCLEROSIS
     Route: 042
     Dates: start: 20070418, end: 20071016
  2. TYSABRI [Suspect]
     Route: 042
     Dates: start: 20091125

REACTIONS (3)
  - BACK PAIN [None]
  - FEELING COLD [None]
  - HYPOAESTHESIA [None]
